FAERS Safety Report 5940277-4 (Version None)
Quarter: 2008Q4

REPORT INFORMATION
  Report Type: 
  Country: None (occurrence: None)
  Receive Date: 20081104
  Receipt Date: 20081031
  Transmission Date: 20090506
  Serious: Yes (Death)
  Sender: FDA-Public Use
  Company Number: US-GILEAD-2008-0018790

PATIENT
  Sex: Female
  Weight: 35.866 kg

DRUGS (14)
  1. LETAIRIS [Suspect]
     Indication: PULMONARY ARTERIAL HYPERTENSION
     Route: 048
     Dates: start: 20081002, end: 20081031
  2. OXYGEN [Concomitant]
     Route: 045
  3. BUMEX [Concomitant]
     Route: 048
  4. FIBERCON [Concomitant]
     Route: 048
  5. ELAVIL [Concomitant]
     Route: 048
  6. ALDACTONE [Concomitant]
     Route: 048
  7. COUMADIN [Concomitant]
     Route: 048
  8. REVATIO [Concomitant]
     Route: 048
  9. LANOXIN [Concomitant]
     Route: 048
  10. ARAVA [Concomitant]
     Route: 048
  11. VALIUM [Concomitant]
     Route: 048
  12. OXYCODONE HCL [Concomitant]
     Route: 048
  13. DURAGESIC-100 [Concomitant]
     Route: 062
  14. FENTORA [Concomitant]
     Route: 060

REACTIONS (1)
  - PULMONARY ARTERIAL HYPERTENSION [None]
